FAERS Safety Report 12971358 (Version 1)
Quarter: 2016Q4

REPORT INFORMATION
  Report Type: Spontaneous
  Country: US (occurrence: US)
  Receive Date: 20161123
  Receipt Date: 20161123
  Transmission Date: 20170207
  Serious: No
  Sender: FDA-Public Use
  Company Number: US-JAZZ-2016-US-019918

PATIENT
  Sex: Female

DRUGS (33)
  1. CYMBALTA [Concomitant]
     Active Substance: DULOXETINE HYDROCHLORIDE
  2. TRAZODONE [Concomitant]
     Active Substance: TRAZODONE HYDROCHLORIDE
  3. XYREM [Suspect]
     Active Substance: SODIUM OXYBATE
     Indication: CHRONIC FATIGUE SYNDROME
     Dosage: 2.25 G, BID
     Route: 048
     Dates: start: 201103, end: 2011
  4. BUTALBITAL APAP CAFFEINE [Concomitant]
  5. RANITIDINE HCL [Concomitant]
     Active Substance: RANITIDINE HYDROCHLORIDE
  6. ULTRAZYME [Concomitant]
  7. ZINC CHELATE [Concomitant]
  8. CALCIUM ANTACID [Concomitant]
     Active Substance: CALCIUM CARBONATE
  9. CLONAZEPAM. [Concomitant]
     Active Substance: CLONAZEPAM
  10. FLAXSEED [Concomitant]
     Active Substance: FLAX SEED
  11. XYREM [Suspect]
     Active Substance: SODIUM OXYBATE
     Dosage: 3.5 G, BID
     Route: 048
     Dates: start: 201104, end: 2011
  12. XYREM [Suspect]
     Active Substance: SODIUM OXYBATE
     Dosage: 4.5 G, BID
     Route: 048
     Dates: start: 201105, end: 201112
  13. ADDERALL [Concomitant]
     Active Substance: AMPHETAMINE ASPARTATE\AMPHETAMINE SULFATE\DEXTROAMPHETAMINE SACCHARATE\DEXTROAMPHETAMINE SULFATE
  14. BYSTOLIC [Concomitant]
     Active Substance: NEBIVOLOL HYDROCHLORIDE
  15. PIMPINELLA ANISUM [Concomitant]
     Active Substance: PIMPINELLA ANISUM WHOLE
  16. TIROSINT [Concomitant]
     Active Substance: LEVOTHYROXINE SODIUM
  17. VITAMIN C ACID [Concomitant]
  18. ARMOUR THYROID [Concomitant]
     Active Substance: THYROID, PORCINE
  19. CLARITINE [Concomitant]
     Active Substance: LORATADINE
  20. LIDOCAINE. [Concomitant]
     Active Substance: LIDOCAINE
  21. SERRAPEPTASE W/VALDECOXIB [Concomitant]
  22. WELLBUTRIN [Concomitant]
     Active Substance: BUPROPION HYDROCHLORIDE
  23. BACLOFEN. [Concomitant]
     Active Substance: BACLOFEN
  24. DHEA [Concomitant]
     Active Substance: PRASTERONE
  25. DOXEPIN [Concomitant]
     Active Substance: DOXEPIN
  26. NALTREXONE [Concomitant]
     Active Substance: NALTREXONE
  27. BIOTIN [Concomitant]
     Active Substance: BIOTIN
  28. COENZYME Q10 [Concomitant]
     Active Substance: UBIDECARENONE
  29. ESTRADIOL W/PROGESTERONE [Concomitant]
  30. FIBER SUPPLEMENT [Concomitant]
  31. CLOTRIMAZOLE AND BETAMETHASONE [Concomitant]
     Active Substance: BETAMETHASONE\CLOTRIMAZOLE
  32. LIDODERM [Concomitant]
     Active Substance: LIDOCAINE
  33. TYLENOL EXTRA STRENGTH [Concomitant]
     Active Substance: ACETAMINOPHEN

REACTIONS (1)
  - Off label use [Unknown]
